FAERS Safety Report 19352302 (Version 3)
Quarter: 2021Q4

REPORT INFORMATION
  Report Type: Spontaneous
  Country: US (occurrence: US)
  Receive Date: 20210601
  Receipt Date: 20211207
  Transmission Date: 20220303
  Serious: Yes (Other)
  Sender: FDA-Public Use
  Company Number: US-PFIZER INC-2021575915

PATIENT
  Age: 53 Year
  Sex: Female

DRUGS (1)
  1. XELJANZ [Suspect]
     Active Substance: TOFACITINIB CITRATE
     Indication: Rheumatoid arthritis
     Dosage: 5 MG, 2X/DAY (TWICE DAILY)
     Route: 048
     Dates: start: 20210213

REACTIONS (9)
  - Anaemia [Unknown]
  - Limb discomfort [Unknown]
  - Hip arthroplasty [Unknown]
  - Arthralgia [Unknown]
  - Platelet count increased [Unknown]
  - Gait disturbance [Unknown]
  - Fatigue [Unknown]
  - Memory impairment [Unknown]
  - Therapeutic product effect incomplete [Unknown]

NARRATIVE: CASE EVENT DATE: 20210101
